FAERS Safety Report 9009977 (Version 1)
Quarter: 2013Q1

REPORT INFORMATION
  Report Type: Report from Study
  Country: BR (occurrence: BR)
  Receive Date: 20130110
  Receipt Date: 20130110
  Transmission Date: 20140127
  Serious: Yes (Hospitalization)
  Sender: FDA-Public Use
  Company Number: BR-SANOFI-AVENTIS-2013SA000573

PATIENT
  Age: 74 Year
  Sex: Male
  Weight: 84 kg

DRUGS (9)
  1. LANTUS [Suspect]
     Indication: DIABETES MELLITUS
     Dosage: DOSE:12 UNIT(S)
     Route: 058
     Dates: start: 201211
  2. CLIKSTAR [Suspect]
     Indication: DEVICE THERAPY
     Dates: start: 201211
  3. MONOCORDIL [Concomitant]
     Indication: VASODILATATION
     Route: 048
     Dates: start: 201211
  4. FORASEQ [Concomitant]
     Indication: RESPIRATORY FAILURE
     Dates: start: 201210
  5. GALVUS [Concomitant]
     Indication: DIABETES MELLITUS
     Route: 048
     Dates: start: 201210
  6. LOSARTAN [Concomitant]
     Indication: HYPERTENSION
     Route: 048
     Dates: start: 201210
  7. LOSARTAN [Concomitant]
     Indication: CARDIAC FAILURE
     Route: 048
     Dates: start: 201210
  8. LASIX [Concomitant]
     Indication: HYPERTENSION
     Route: 048
     Dates: start: 201210
  9. HIGROTON [Concomitant]
     Indication: HYPERTENSION
     Route: 048
     Dates: start: 201210

REACTIONS (3)
  - Peripheral ischaemia [Recovered/Resolved]
  - Cardiac disorder [Recovered/Resolved]
  - Respiratory disorder [Recovered/Resolved]
